FAERS Safety Report 5806210-0 (Version None)
Quarter: 2008Q3

REPORT INFORMATION
  Report Type: 
  Country: None (occurrence: None)
  Receive Date: 20080709
  Receipt Date: 20080709
  Transmission Date: 20090109
  Serious: Yes (Disabling)
  Sender: FDA-Public Use
  Company Number: None

PATIENT
  Sex: Female

DRUGS (1)
  1. BUPIVACAINE [Suspect]
     Indication: JOINT INJURY
     Dosage: 100 CC 014
     Dates: start: 20020103

REACTIONS (1)
  - OSTEOARTHRITIS [None]
